FAERS Safety Report 5320757-5 (Version None)
Quarter: 2007Q2

REPORT INFORMATION
  Report Type: 
  Country: None (occurrence: None)
  Receive Date: 20070509
  Receipt Date: 20070501
  Transmission Date: 20071010
  Serious: Yes (Other)
  Sender: FDA-Public Use
  Company Number: NL-PFIZER INC-2007036171

PATIENT
  Sex: Male
  Weight: 80 kg

DRUGS (1)
  1. LYRICA [Suspect]
     Route: 048

REACTIONS (6)
  - CLUMSINESS [None]
  - EMOTIONAL DISORDER [None]
  - GRIP STRENGTH DECREASED [None]
  - ILLUSION [None]
  - SEDATION [None]
  - TREMOR [None]
